FAERS Safety Report 16842623 (Version 1)
Quarter: 2019Q3

REPORT INFORMATION
  Report Type: Report from Study
  Country: None (occurrence: DE)
  Receive Date: 20190924
  Receipt Date: 20190924
  Transmission Date: 20191005
  Serious: Yes (Death, Hospitalization)
  Sender: FDA-Public Use
  Company Number: DE-ABBVIE-19K-062-2937284-00

PATIENT
  Age: 78 Year
  Sex: Female

DRUGS (9)
  1. PANTOZOL [Concomitant]
     Active Substance: PANTOPRAZOLE SODIUM
     Indication: PRODUCT USED FOR UNKNOWN INDICATION
  2. LEVODOPA [Concomitant]
     Active Substance: LEVODOPA
     Indication: PRODUCT USED FOR UNKNOWN INDICATION
     Dosage: RETARD (AT NIGHT)
  3. ASPIRIN. [Concomitant]
     Active Substance: ASPIRIN
     Indication: PRODUCT USED FOR UNKNOWN INDICATION
  4. ZOLPIDEM [Concomitant]
     Active Substance: ZOLPIDEM TARTRATE
     Indication: PRODUCT USED FOR UNKNOWN INDICATION
  5. ARCOXIA [Concomitant]
     Active Substance: ETORICOXIB
     Indication: PRODUCT USED FOR UNKNOWN INDICATION
  6. MIRTAZAPIN [Concomitant]
     Active Substance: MIRTAZAPINE
     Indication: PRODUCT USED FOR UNKNOWN INDICATION
  7. DOMPERIDON [Concomitant]
     Active Substance: DOMPERIDONE
     Indication: PRODUCT USED FOR UNKNOWN INDICATION
  8. VITAMIN B12 [Concomitant]
     Active Substance: CYANOCOBALAMIN
     Indication: PRODUCT USED FOR UNKNOWN INDICATION
  9. DUODOPA [Suspect]
     Active Substance: CARBIDOPA\LEVODOPA
     Indication: PARKINSON^S DISEASE
     Dosage: MD 8.0ML  CRD 3.2ML/H  ED 1.5ML
     Route: 050
     Dates: start: 20150427

REACTIONS (2)
  - Death [Fatal]
  - Cardiac arrest [Recovered/Resolved]

NARRATIVE: CASE EVENT DATE: 20190918
